FAERS Safety Report 8908942 (Version 1)
Quarter: 2012Q4

REPORT INFORMATION
  Report Type: 
  Country: US (occurrence: US)
  Receive Date: 20121114
  Receipt Date: 20121114
  Transmission Date: 20130627
  Serious: No
  Sender: FDA-Public Use
  Company Number: US-MYLANLABS-2012S1016888

PATIENT
  Age: 54 Year
  Sex: Female

DRUGS (1)
  1. TRIAMTERENE + HYDROCHLOROTHIAZIDE [Suspect]
     Route: 048
     Dates: start: 201207

REACTIONS (3)
  - Joint swelling [Not Recovered/Not Resolved]
  - Oedema peripheral [Not Recovered/Not Resolved]
  - Eye swelling [Not Recovered/Not Resolved]
